FAERS Safety Report 8891321 (Version 1)
Quarter: 2012Q4

REPORT INFORMATION
  Report Type: Spontaneous
  Country: US (occurrence: None)
  Receive Date: 20121105
  Receipt Date: 20121105
  Transmission Date: 20130627
  Serious: Yes (Life-Threatening, Hospitalization)
  Sender: FDA-Public Use
  Company Number: None

PATIENT
  Age: 56 Year
  Sex: Female
  Weight: 63.5 kg

DRUGS (2)
  1. VIIBRYD [Suspect]
     Indication: DEPRESSION
     Dates: start: 20120801
  2. VIIBRYD [Suspect]
     Indication: DEPRESSION
     Dates: start: 20120901

REACTIONS (11)
  - Depression [None]
  - Suicidal ideation [None]
  - Loss of consciousness [None]
  - Joint swelling [None]
  - Dysgeusia [None]
  - Gait disturbance [None]
  - Crying [None]
  - Mental impairment [None]
  - Weight decreased [None]
  - Oedema peripheral [None]
  - Concussion [None]
